FAERS Safety Report 11287514 (Version 1)
Quarter: 2015Q3

REPORT INFORMATION
  Report Type: Spontaneous
  Country: DK (occurrence: DK)
  Receive Date: 20150721
  Receipt Date: 20150721
  Transmission Date: 20151125
  Serious: Yes (Hospitalization)
  Sender: FDA-Public Use
  Company Number: DK-ACTAVIS-2015-14866

PATIENT
  Age: 55 Year
  Sex: Female
  Weight: 69 kg

DRUGS (2)
  1. QUETIAPIN ACTAVIS [Suspect]
     Active Substance: QUETIAPINE
     Indication: DEPRESSION
     Dosage: 100 MG, DAILY
     Route: 048
     Dates: start: 20130620, end: 20150707
  2. CITALOPRAM [Concomitant]
     Active Substance: CITALOPRAM HYDROBROMIDE
     Indication: DEPRESSION
     Dosage: UNK
     Route: 065
     Dates: start: 20130909

REACTIONS (8)
  - Blood creatine phosphokinase increased [Recovering/Resolving]
  - Encephalopathy [Unknown]
  - Rhabdomyolysis [Recovering/Resolving]
  - Speech disorder [Recovered/Resolved]
  - Somnolence [Recovered/Resolved]
  - Coma scale abnormal [Recovered/Resolved]
  - Depressed level of consciousness [Recovered/Resolved]
  - Myoglobin blood increased [Recovered/Resolved]

NARRATIVE: CASE EVENT DATE: 20150702
